FAERS Safety Report 20697340 (Version 1)
Quarter: 2022Q2

REPORT INFORMATION
  Report Type: Spontaneous
  Country: US (occurrence: US)
  Receive Date: 20220411
  Receipt Date: 20220411
  Transmission Date: 20220720
  Serious: No
  Sender: FDA-Public Use
  Company Number: US-PFIZER INC-202100933538

PATIENT
  Age: 58 Year
  Sex: Male
  Weight: 76.19 kg

DRUGS (1)
  1. INLYTA [Suspect]
     Active Substance: AXITINIB
     Indication: Renal cancer
     Dosage: 5 MG, 2X/DAY (1 TABLET TWICE DAILY)
     Route: 048
     Dates: start: 20210513

REACTIONS (4)
  - Dysphonia [Unknown]
  - Fatigue [Unknown]
  - Hyperkeratosis [Unknown]
  - Pain in extremity [Unknown]
